FAERS Safety Report 5359356-8 (Version None)
Quarter: 2007Q2

REPORT INFORMATION
  Report Type: 
  Country: None (occurrence: None)
  Receive Date: 20070615
  Receipt Date: 20070605
  Transmission Date: 20071010
  Serious: Yes (Hospitalization, Other)
  Sender: FDA-Public Use
  Company Number: US-PFIZER INC-2007035766

PATIENT
  Sex: Female
  Weight: 81.6 kg

DRUGS (7)
  1. GEODON [Suspect]
     Indication: BIPOLAR DISORDER
  2. GEODON [Suspect]
     Indication: DEPRESSION
  3. LEXAPRO [Concomitant]
     Dosage: DAILY DOSE:20MG
  4. LAMICTAL [Concomitant]
     Dosage: DAILY DOSE:325MG
  5. KLONOPIN [Concomitant]
  6. TOPAMAX [Concomitant]
     Indication: TREMOR
  7. TRAZODONE HCL [Concomitant]
     Indication: SLEEP DISORDER
     Dosage: DAILY DOSE:50MG

REACTIONS (7)
  - ANXIETY [None]
  - BLOOD GLUCOSE INCREASED [None]
  - DEPRESSION [None]
  - HALLUCINATION, AUDITORY [None]
  - PANIC ATTACK [None]
  - SUICIDAL IDEATION [None]
  - TARDIVE DYSKINESIA [None]
